FAERS Safety Report 20482363 (Version 1)
Quarter: 2022Q1

REPORT INFORMATION
  Report Type: Spontaneous
  Country: CA (occurrence: CA)
  Receive Date: 20220217
  Receipt Date: 20220217
  Transmission Date: 20220423
  Serious: Yes (Other)
  Sender: FDA-Public Use
  Company Number: CA-JNJFOC-20220229279

PATIENT
  Age: 66 Year
  Sex: Male

DRUGS (3)
  1. REMICADE [Suspect]
     Active Substance: INFLIXIMAB
     Indication: Crohn^s disease
     Route: 042
  2. IBUPROFEN [Concomitant]
     Active Substance: IBUPROFEN
     Dosage: 1.0 DOSAGE FORMS
     Route: 065
  3. CODEINE [Concomitant]
     Active Substance: CODEINE
     Dosage: 1.0 DOSAGE FORMS
     Route: 065

REACTIONS (8)
  - Cardiac arrest [Unknown]
  - Depression [Unknown]
  - Sleep disorder [Unknown]
  - Tooth injury [Unknown]
  - Weight decreased [Unknown]
  - Gingivitis [Unknown]
  - Diarrhoea [Unknown]
  - Off label use [Unknown]
